FAERS Safety Report 18294104 (Version 1)
Quarter: 2020Q3

REPORT INFORMATION
  Report Type: Spontaneous
  Country: US (occurrence: US)
  Receive Date: 20200922
  Receipt Date: 20200922
  Transmission Date: 20201103
  Serious: Yes (Other)
  Sender: FDA-Public Use
  Company Number: None

PATIENT
  Age: 78 Year
  Sex: Male
  Weight: 95 kg

DRUGS (11)
  1. CHOLECALCIFEROL PO [Concomitant]
     Dates: start: 20200911, end: 20200916
  2. REMDESIVIR. [Suspect]
     Active Substance: REMDESIVIR
     Route: 042
     Dates: start: 20200911, end: 20200914
  3. DEXAMETHASONE IV [Concomitant]
     Active Substance: DEXAMETHASONE
     Dates: start: 20200911, end: 20200920
  4. PANTOPRAZOLE IV [Concomitant]
     Active Substance: PANTOPRAZOLE SODIUM
     Dates: start: 20200913, end: 20200915
  5. ASCORBIC ACID PO [Concomitant]
     Dates: start: 20200911, end: 20200916
  6. ZINC PO [Concomitant]
     Dates: start: 20200911, end: 20200916
  7. AMIODARONE IV [Concomitant]
     Dates: start: 20200913, end: 20200914
  8. PIOGLITAZONE PO [Concomitant]
     Dates: end: 20200914
  9. DOXYCYCLINE IV [Concomitant]
     Dates: start: 20200911, end: 20200918
  10. FUROSEMIDE IV [Concomitant]
     Dates: start: 20200911, end: 20200915
  11. ALBUMIN HUMAN 25% IV [Concomitant]
     Dates: start: 20200913, end: 20200914

REACTIONS (1)
  - Alanine aminotransferase increased [None]

NARRATIVE: CASE EVENT DATE: 20200914
